FAERS Safety Report 7406684-8 (Version None)
Quarter: 2011Q2

REPORT INFORMATION
  Report Type: 
  Country: None (occurrence: None)
  Receive Date: 20110411
  Receipt Date: 20110406
  Transmission Date: 20111010
  Serious: Yes (Other)
  Sender: FDA-Public Use
  Company Number: US-PFIZER INC-2011076352

PATIENT
  Sex: Female

DRUGS (1)
  1. RELISTOR [Suspect]
     Indication: CONSTIPATION
     Dosage: UNK

REACTIONS (4)
  - MOOD ALTERED [None]
  - IRRITABILITY [None]
  - TACHYCARDIA [None]
  - FLUSHING [None]
